FAERS Safety Report 7160533-4 (Version None)
Quarter: 2010Q4

REPORT INFORMATION
  Report Type: 
  Country: None (occurrence: None)
  Receive Date: 20101214
  Receipt Date: 20100104
  Transmission Date: 20110411
  Serious: Yes (Other)
  Sender: FDA-Public Use
  Company Number: US-AMGEN-QUU380038

PATIENT

DRUGS (6)
  1. ENBREL [Suspect]
     Indication: PSORIASIS
     Dosage: 50 MG, QWK
     Route: 058
     Dates: start: 20080617, end: 20091228
  2. ENALAPRIL [Concomitant]
     Dosage: 10 MG, QD
     Dates: start: 20071023
  3. CIMETIDINE [Concomitant]
     Dosage: UNK UNK, PRN
  4. IBUPROFEN [Concomitant]
     Dosage: UNK UNK, PRN
  5. METHOTREXATE [Concomitant]
     Dosage: 15 MG, QWK
     Dates: start: 20071113, end: 20080910
  6. TRIAMCINOLONE [Concomitant]

REACTIONS (14)
  - ABDOMINAL DISTENSION [None]
  - ABDOMINAL PAIN [None]
  - ADRENAL ADENOMA [None]
  - APPENDIX DISORDER [None]
  - BACK PAIN [None]
  - BLADDER TRANSITIONAL CELL CARCINOMA [None]
  - BODY MASS INDEX INCREASED [None]
  - DYSURIA [None]
  - FALL [None]
  - FLANK PAIN [None]
  - HAEMATURIA [None]
  - HYPERTENSION [None]
  - PROSTATIC SPECIFIC ANTIGEN INCREASED [None]
  - ROTATOR CUFF SYNDROME [None]
